FAERS Safety Report 13046985 (Version 2)
Quarter: 2017Q1

REPORT INFORMATION
  Report Type: Spontaneous
  Country: None (occurrence: RS)
  Receive Date: 20161220
  Receipt Date: 20170208
  Transmission Date: 20170428
  Serious: Yes (Death, Hospitalization, Other)
  Sender: FDA-Public Use
  Company Number: RS-CELLTRION INC.-2016RS013212

PATIENT

DRUGS (2)
  1. INFLIXIMAB HOSPIRA [Suspect]
     Active Substance: INFLIXIMAB
  2. AZATHIOPRINE. [Suspect]
     Active Substance: AZATHIOPRINE
     Indication: COLITIS ULCERATIVE

REACTIONS (4)
  - Gastrointestinal haemorrhage [Fatal]
  - Hydrocephalus [Fatal]
  - Respiratory failure [Fatal]
  - Encephalitis [Fatal]

NARRATIVE: CASE EVENT DATE: 201504
